FAERS Safety Report 9502077 (Version 1)
Quarter: 2013Q3

REPORT INFORMATION
  Report Type: Spontaneous
  Country: US (occurrence: US)
  Receive Date: 20130905
  Receipt Date: 20130905
  Transmission Date: 20140515
  Serious: No
  Sender: FDA-Public Use
  Company Number: US-009507513-1308USA009422

PATIENT
  Age: 59 Year
  Sex: Female

DRUGS (5)
  1. DULERA [Suspect]
     Indication: ASTHMA
     Dosage: TWO PUFFS TWO TIMES A DAY, ORAL INHALATION
     Route: 055
     Dates: start: 20130612
  2. DETROL LA [Concomitant]
  3. OMEPRAZOLE [Concomitant]
  4. PROZAC [Concomitant]
  5. ASPIRIN [Concomitant]

REACTIONS (3)
  - Cough [Unknown]
  - Wheezing [Unknown]
  - Product quality issue [Unknown]
